FAERS Safety Report 5962979-6 (Version None)
Quarter: 2008Q4

REPORT INFORMATION
  Report Type: 
  Country: None (occurrence: None)
  Receive Date: 20081120
  Receipt Date: 20081110
  Transmission Date: 20090506
  Serious: Yes (Other)
  Sender: FDA-Public Use
  Company Number: 100#08#2008-05684

PATIENT
  Age: 68 Year
  Sex: Male

DRUGS (4)
  1. ETHAMBUTOL HCL [Suspect]
     Indication: PLEURAL EFFUSION
  2. RIFAMPICIN [Suspect]
     Indication: PLEURAL EFFUSION
     Dosage: 150 MG
  3. ISONIAZID [Suspect]
     Indication: PLEURAL EFFUSION
  4. PYRAZINAMIDE [Suspect]
     Indication: PLEURAL EFFUSION
     Dosage: 500 MG,

REACTIONS (5)
  - BLEEDING TIME PROLONGED [None]
  - COAGULATION TIME PROLONGED [None]
  - HAEMOGLOBIN DECREASED [None]
  - RASH MACULO-PAPULAR [None]
  - THROMBOCYTOPENIA [None]
